FAERS Safety Report 5804038-9 (Version None)
Quarter: 2008Q3

REPORT INFORMATION
  Report Type: 
  Country: None (occurrence: None)
  Receive Date: 20080709
  Receipt Date: 20080707
  Transmission Date: 20090109
  Serious: Yes (Other)
  Sender: FDA-Public Use
  Company Number: GB-SP-2008-02200

PATIENT
  Age: 64 Year
  Sex: Male

DRUGS (2)
  1. BCG  THERAPEUTICS [Suspect]
     Indication: CARCINOMA IN SITU OF BLADDER
     Dosage: NOT REPORTED
     Route: 043
  2. BCG  THERAPEUTICS [Suspect]
     Dosage: NOT REPORTED
     Route: 043

REACTIONS (4)
  - HYDRONEPHROSIS [None]
  - LYMPHADENOPATHY [None]
  - METASTATIC CARCINOMA OF THE BLADDER [None]
  - RENAL FAILURE [None]
